FAERS Safety Report 25300680 (Version 1)
Quarter: 2025Q2

REPORT INFORMATION
  Report Type: Spontaneous
  Country: US (occurrence: None)
  Receive Date: 20250509
  Receipt Date: 20250509
  Transmission Date: 20250716
  Serious: Yes (Hospitalization)
  Sender: FDA-CTU
  Company Number: None

PATIENT
  Sex: Male

DRUGS (11)
  1. TASIGNA [Suspect]
     Active Substance: NILOTINIB
     Indication: Chronic myeloid leukaemia
     Dosage: TAKE 2 CAPSULES BY MOUTH TWICE DAILY ON EMPTY STOMACH 1 HOURS BEFORE OR 2 HOURS AFTER A MEAL
     Route: 048
     Dates: start: 20250110
  2. ALLOPURINOL [Concomitant]
     Active Substance: ALLOPURINOL
  3. ATORVASTATIN [Concomitant]
     Active Substance: ATORVASTATIN
  4. CEFDINIR [Concomitant]
     Active Substance: CEFDINIR
  5. GUAIFENESIN [Concomitant]
     Active Substance: GUAIFENESIN
  6. JARDIANCE [Concomitant]
     Active Substance: EMPAGLIFLOZIN
  7. LOSARTAN POTASSIUM [Concomitant]
     Active Substance: LOSARTAN POTASSIUM
  8. MAGNESIUM [Concomitant]
     Active Substance: MAGNESIUM
  9. MULTIPLE VIT [Concomitant]
  10. ONDANSETRON [Concomitant]
     Active Substance: ONDANSETRON
  11. REPATHA SURE INJ [Concomitant]

REACTIONS (3)
  - Discomfort [None]
  - Sleep disorder [None]
  - Rash [None]
